FAERS Safety Report 20260887 (Version 1)
Quarter: 2021Q4

REPORT INFORMATION
  Report Type: Spontaneous
  Country: US (occurrence: US)
  Receive Date: 20211230
  Receipt Date: 20211230
  Transmission Date: 20220303
  Serious: No
  Sender: FDA-Public Use
  Company Number: US-JNJFOC-20211250540

PATIENT
  Age: 57 Year
  Sex: Female
  Weight: 83.1 kg

DRUGS (2)
  1. DARZALEX [Suspect]
     Active Substance: DARATUMUMAB
     Indication: Plasma cell myeloma
     Dosage: DOSE 300 MG , 3 VIALS OF 100 MG STRENGTH  AND 1 VIAL OF 400 MG
     Route: 042
     Dates: start: 20211008
  2. DARZALEX [Suspect]
     Active Substance: DARATUMUMAB
     Route: 042

REACTIONS (2)
  - Cough [Unknown]
  - Pyrexia [Unknown]

NARRATIVE: CASE EVENT DATE: 20211221
